FAERS Safety Report 9735249 (Version 1)
Quarter: 2013Q4

REPORT INFORMATION
  Report Type: Spontaneous
  Country: JP (occurrence: None)
  Receive Date: 20131204
  Receipt Date: 20131204
  Transmission Date: 20140711
  Serious: Yes (Other)
  Sender: FDA-Public Use
  Company Number: SYM-2013-13389

PATIENT
  Sex: 0

DRUGS (5)
  1. FLUOROURACIL (FLUOROURACIL) (FLUOROURACIL) [Suspect]
     Indication: BREAST CANCER
  2. EPIRUBICIN (EPIRUBICIN) (EPIRUBICIN) [Suspect]
     Indication: BREAST CANCER
  3. CYCLOPHOSPHAMIDE (CYCLOPHOSPHAMIDE) (CYCLOPHOSPHAMIDE) [Suspect]
     Indication: BREAST CANCER
  4. PACLITAXEL [Suspect]
     Indication: BREAST CANCER
     Dosage: WEEKLY
  5. TRASTUZUMAB [Suspect]
     Indication: BREAST CANCER
     Dosage: WEEKLY

REACTIONS (1)
  - Neuropathy peripheral [None]
